FAERS Safety Report 7609306-6 (Version None)
Quarter: 2011Q3

REPORT INFORMATION
  Report Type: 
  Country: None (occurrence: None)
  Receive Date: 20110714
  Receipt Date: 20110705
  Transmission Date: 20111222
  Serious: Yes (Hospitalization)
  Sender: FDA-Public Use
  Company Number: PHHY2011US55907

PATIENT
  Sex: Female

DRUGS (7)
  1. DUONEB [Concomitant]
  2. TOBI [Suspect]
     Indication: PSEUDOMONAS INFECTION
  3. POTASSIUM [Concomitant]
  4. CIPROFLOXACIN HCL [Suspect]
     Indication: PSEUDOMONAS INFECTION
     Route: 048
  5. COMBIVENT [Concomitant]
  6. FLOVENT [Concomitant]
  7. LASIX [Suspect]
     Dosage: 80 MG, BID (80 MG IN THE MORNING AND IN THE EVENING)

REACTIONS (8)
  - DYSPNOEA [None]
  - MALAISE [None]
  - DYSPNOEA EXERTIONAL [None]
  - CHRONIC RESPIRATORY FAILURE [None]
  - CHRONIC OBSTRUCTIVE PULMONARY DISEASE [None]
  - FEELING COLD [None]
  - PRODUCTIVE COUGH [None]
  - FEELING HOT [None]
